FAERS Safety Report 9718525 (Version 1)
Quarter: 2013Q4

REPORT INFORMATION
  Report Type: Spontaneous
  Country: US (occurrence: US)
  Receive Date: 20131125
  Receipt Date: 20131125
  Transmission Date: 20140711
  Serious: No
  Sender: FDA-Public Use
  Company Number: US-VIVUS-2013V1000689

PATIENT
  Sex: Female
  Weight: 81.68 kg

DRUGS (1)
  1. QSYMIA 7.5MG/46MG [Suspect]
     Indication: OBESITY
     Route: 048
     Dates: start: 20130626

REACTIONS (3)
  - Periorbital oedema [Unknown]
  - Sinusitis [Unknown]
  - Nausea [Unknown]
